FAERS Safety Report 8026051-6 (Version None)
Quarter: 2012Q1

REPORT INFORMATION
  Report Type: 
  Country: None (occurrence: None)
  Receive Date: 20120105
  Receipt Date: 20110606
  Transmission Date: 20120608
  Serious: No
  Sender: FDA-Public Use
  Company Number: US-ABBOTT-11P-163-0728756-00

PATIENT
  Sex: Female
  Weight: 68.554 kg

DRUGS (9)
  1. CALCIUM LACTATE [Concomitant]
     Indication: MINERAL SUPPLEMENTATION
  2. CALCIUM MAGNESIUM ZINC [Concomitant]
     Indication: SUPPLEMENTATION THERAPY
  3. COD LIVER OIL [Concomitant]
     Indication: SUPPLEMENTATION THERAPY
  4. VITAMIN B-12 [Concomitant]
     Indication: VITAMIN SUPPLEMENTATION
  5. SYNTHROID [Suspect]
     Indication: HYPOTHYROIDISM
     Dates: start: 19910101
  6. VITAMIN B3 [Concomitant]
     Indication: VITAMIN SUPPLEMENTATION
  7. LABETALOL HCL [Suspect]
     Indication: HYPERTENSION
     Dates: start: 20100801
  8. CLONIDINE [Concomitant]
     Indication: HYPERTENSION
     Dosage: 1/2 TAB TWICE A DAY, UP TO 3-4 TIMES/DAY
     Dates: start: 20100101
  9. VITAMIN B6 [Concomitant]
     Indication: VITAMIN SUPPLEMENTATION

REACTIONS (7)
  - DYSPNOEA [None]
  - THROAT TIGHTNESS [None]
  - INAPPROPRIATE SCHEDULE OF DRUG ADMINISTRATION [None]
  - BLOOD PRESSURE FLUCTUATION [None]
  - BLOOD PRESSURE INCREASED [None]
  - SOMNOLENCE [None]
  - ABDOMINAL PAIN UPPER [None]
